FAERS Safety Report 24634567 (Version 2)
Quarter: 2025Q1

REPORT INFORMATION
  Report Type: Report from Study
  Country: US (occurrence: US)
  Receive Date: 20241119
  Receipt Date: 20250206
  Transmission Date: 20250409
  Serious: Yes (Hospitalization, Other)
  Sender: ACADIA PHARMACEUTICALS
  Company Number: US-ACADIA PHARMACEUTICALS INC.-ACA-2024-PIM-006898

PATIENT
  Age: 67 Year
  Sex: Female

DRUGS (12)
  1. NUPLAZID [Suspect]
     Active Substance: PIMAVANSERIN TARTRATE
     Indication: Parkinson^s disease
     Dosage: 10 MILLIGRAM, QD
     Route: 048
     Dates: start: 20241004
  2. PRAMIPEXOLE [Concomitant]
     Active Substance: PRAMIPEXOLE
  3. CARBIDOPA\LEVODOPA [Concomitant]
     Active Substance: CARBIDOPA\LEVODOPA
  4. CETIRIZINE [Concomitant]
     Active Substance: CETIRIZINE HYDROCHLORIDE
  5. DIVALPROEX SODIUM [Concomitant]
     Active Substance: DIVALPROEX SODIUM
  6. DIVALPROEX SODIUM [Concomitant]
     Active Substance: DIVALPROEX SODIUM
  7. ROSUVASTATIN [Concomitant]
     Active Substance: ROSUVASTATIN
  8. VENLAFAXINE [Concomitant]
     Active Substance: VENLAFAXINE HYDROCHLORIDE
  9. VENLAFAXINE [Concomitant]
     Active Substance: VENLAFAXINE HYDROCHLORIDE
  10. COENZYME Q10 [Concomitant]
     Active Substance: DIETARY SUPPLEMENT\UBIDECARENONE
  11. FOLIC ACID [Concomitant]
     Active Substance: FOLIC ACID
  12. VITAMIN D NOS [Concomitant]
     Active Substance: CHOLECALCIFEROL\ERGOCALCIFEROL

REACTIONS (2)
  - Clostridium difficile infection [Recovered/Resolved]
  - Oedema peripheral [Not Recovered/Not Resolved]

NARRATIVE: CASE EVENT DATE: 20250105
